FAERS Safety Report 9322730 (Version 5)
Quarter: 2014Q1

REPORT INFORMATION
  Report Type: Spontaneous
  Country: US (occurrence: US)
  Receive Date: 20130601
  Receipt Date: 20140214
  Transmission Date: 20141002
  Serious: Yes (Other)
  Sender: FDA-Public Use
  Company Number: US-ASTRAZENECA-2013SE38702

PATIENT
  Age: 48 Year
  Sex: Male
  Weight: 90.7 kg

DRUGS (19)
  1. NEXIUM [Suspect]
     Indication: GASTROOESOPHAGEAL REFLUX DISEASE
     Dosage: AS NEEDED
     Route: 048
  2. NEXIUM [Suspect]
     Indication: GASTROOESOPHAGEAL REFLUX DISEASE
     Dosage: 1 TO 2 TIMES AS NEEDED.
     Route: 048
     Dates: start: 200401, end: 2012
  3. NEXIUM [Suspect]
     Indication: GASTROOESOPHAGEAL REFLUX DISEASE
     Route: 048
     Dates: start: 20080121
  4. NEXIUM [Suspect]
     Indication: GASTROOESOPHAGEAL REFLUX DISEASE
     Route: 048
  5. RANITIDINE [Concomitant]
     Dosage: 1 TO 2 TABLETS A DAY
     Dates: start: 20050209
  6. TUMS [Concomitant]
     Dosage: TWO SMALL ROLLS
  7. HYDROCODONE/APAP [Concomitant]
     Indication: PAIN
     Dosage: 10-500
     Dates: start: 20100301
  8. HYDROCODONE/APAP [Concomitant]
     Indication: PAIN
     Dates: start: 20100301
  9. CLONAZEPAM [Concomitant]
     Dates: start: 20110614
  10. NAPROXEN [Concomitant]
     Dates: start: 20080121
  11. METOPROLOL ER [Concomitant]
     Indication: BLOOD PRESSURE
     Dates: start: 20100519
  12. ZITHROMAX [Concomitant]
     Dates: start: 20050105
  13. DURATUSS [Concomitant]
     Dates: start: 20080319
  14. BUSPIRONE [Concomitant]
     Dates: start: 20100625
  15. LORATAB [Concomitant]
  16. LISINOPRIL [Concomitant]
  17. AMLODIPINE [Concomitant]
  18. METOPROLOL [Concomitant]
  19. ALPRAZOLAM [Concomitant]

REACTIONS (13)
  - Hip fracture [Unknown]
  - Spinal fracture [Unknown]
  - Lumbar vertebral fracture [Unknown]
  - Concussion [Unknown]
  - Osteoporosis [Unknown]
  - Bone disorder [Unknown]
  - Anxiety [Unknown]
  - Multiple fractures [Unknown]
  - Foot fracture [Unknown]
  - Forearm fracture [Unknown]
  - Hand fracture [Unknown]
  - Anger [Unknown]
  - Upper limb fracture [Unknown]
